FAERS Safety Report 8159130 (Version 2)
Quarter: 2015Q1

REPORT INFORMATION
  Report Type: Spontaneous
  Country: US (occurrence: US)
  Receive Date: 20110927
  Receipt Date: 20150327
  Transmission Date: 20150721
  Serious: Yes (Hospitalization, Congenital Anomaly)
  Sender: FDA-Public Use
  Company Number: US-ELI_LILLY_AND_COMPANY-US201109004147

PATIENT

DRUGS (3)
  1. PROZAC [Suspect]
     Active Substance: FLUOXETINE HYDROCHLORIDE
     Indication: MAJOR DEPRESSION
     Dosage: UNK, UNKNOWN
     Route: 064
  2. PRENATAL VITAMINS                  /08195401/ [Concomitant]
     Route: 064
  3. ZYPREXA [Concomitant]
     Active Substance: OLANZAPINE
     Indication: DEPRESSION
     Dosage: 5 MG, EACH EVENING
     Route: 064

REACTIONS (5)
  - Cleft lip [Unknown]
  - Foetal exposure during pregnancy [Recovered/Resolved]
  - IVth nerve paralysis [Unknown]
  - Otitis media chronic [Unknown]
  - Cleft palate [Unknown]
